FAERS Safety Report 18694709 (Version 1)
Quarter: 2020Q4

REPORT INFORMATION
  Report Type: Spontaneous
  Country: US (occurrence: US)
  Receive Date: 20201231
  Receipt Date: 20201231
  Transmission Date: 20210114
  Serious: No
  Sender: FDA-Public Use
  Company Number: None

PATIENT
  Sex: Female

DRUGS (1)
  1. DUPIXENT [Suspect]
     Active Substance: DUPILUMAB
     Indication: DERMATITIS ATOPIC
     Route: 058
     Dates: start: 20201221

REACTIONS (6)
  - Injection site pain [None]
  - Device failure [None]
  - Product dose omission issue [None]
  - Device delivery system issue [None]
  - Device difficult to use [None]
  - Wrong technique in product usage process [None]
